FAERS Safety Report 13180270 (Version 1)
Quarter: 2017Q1

REPORT INFORMATION
  Report Type: Report from Study
  Country: BR (occurrence: BR)
  Receive Date: 20170202
  Receipt Date: 20170202
  Transmission Date: 20170428
  Serious: Yes (Other)
  Sender: FDA-Public Use
  Company Number: BR-JNJFOC-20170200551

PATIENT
  Age: 70 Year
  Sex: Female
  Weight: 60 kg

DRUGS (2)
  1. SIMPONI [Suspect]
     Active Substance: GOLIMUMAB
     Indication: RHEUMATOID ARTHRITIS
     Route: 058
     Dates: start: 20140917
  2. LOSARTAN. [Concomitant]
     Active Substance: LOSARTAN
     Route: 065

REACTIONS (6)
  - Fall [Unknown]
  - Inappropriate schedule of drug administration [Unknown]
  - Urinary tract infection [Unknown]
  - Off label use [Unknown]
  - Pain in extremity [Unknown]
  - Balance disorder [Unknown]

NARRATIVE: CASE EVENT DATE: 201612
